FAERS Safety Report 9517789 (Version 1)
Quarter: 2013Q3

REPORT INFORMATION
  Report Type: Spontaneous
  Country: FR (occurrence: FR)
  Receive Date: 20130912
  Receipt Date: 20130912
  Transmission Date: 20140515
  Serious: Yes (Hospitalization)
  Sender: FDA-Public Use
  Company Number: FR-AMGEN-FRASP2013063628

PATIENT
  Age: 63 Year
  Sex: Female

DRUGS (8)
  1. ENBREL [Suspect]
     Indication: RHEUMATOID ARTHRITIS
     Dosage: UNK
     Route: 058
     Dates: end: 201305
  2. ENBREL [Suspect]
     Dosage: UNK
     Route: 058
     Dates: start: 20130531, end: 201307
  3. CORTANCYL [Suspect]
     Indication: PRODUCT USED FOR UNKNOWN INDICATION
     Dosage: UNK
     Route: 048
     Dates: end: 201305
  4. CORTANCYL [Suspect]
     Dosage: UNK
     Route: 065
     Dates: end: 201307
  5. INEXIUM                            /01479302/ [Concomitant]
     Dosage: UNK UNK, UNK
     Route: 065
  6. FUMAFER [Concomitant]
     Dosage: UNK UNK, UNK
     Route: 065
  7. LEXOMIL [Concomitant]
     Dosage: UNK UNK, UNK
     Route: 065
  8. MIRTAZAPINE [Concomitant]
     Dosage: UNK UNK, UNK
     Route: 065

REACTIONS (1)
  - Mastitis [Recovering/Resolving]
